FAERS Safety Report 25662547 (Version 3)
Quarter: 2025Q3

REPORT INFORMATION
  Report Type: Report from Study
  Country: CO (occurrence: CO)
  Receive Date: 20250810
  Receipt Date: 20250923
  Transmission Date: 20251020
  Serious: Yes (Hospitalization)
  Sender: JOHNSON AND JOHNSON
  Company Number: CO-JNJFOC-20250808812

PATIENT
  Age: 59 Year
  Sex: Male

DRUGS (4)
  1. INVEGA SUSTENNA [Suspect]
     Active Substance: PALIPERIDONE PALMITATE
     Indication: Schizoaffective disorder
     Dosage: LAST ADMINISTERED ON 11-AUG-2025
     Route: 030
     Dates: start: 20250612
  2. INVEGA SUSTENNA [Suspect]
     Active Substance: PALIPERIDONE PALMITATE
  3. INVEGA SUSTENNA [Suspect]
     Active Substance: PALIPERIDONE PALMITATE
  4. Biperiden tablets [Concomitant]
     Indication: Product used for unknown indication

REACTIONS (5)
  - Monoplegia [Unknown]
  - Amnesia [Unknown]
  - Gait disturbance [Not Recovered/Not Resolved]
  - Bradyphrenia [Unknown]
  - Gout [Unknown]

NARRATIVE: CASE EVENT DATE: 20250101
